FAERS Safety Report 14673414 (Version 1)
Quarter: 2018Q1

REPORT INFORMATION
  Report Type: Report from Study
  Country: US (occurrence: US)
  Receive Date: 20180323
  Receipt Date: 20180323
  Transmission Date: 20180509
  Serious: No
  Sender: FDA-Public Use
  Company Number: PHEH2018US011152

PATIENT
  Sex: Female

DRUGS (1)
  1. COSENTYX [Suspect]
     Active Substance: SECUKINUMAB
     Indication: PRODUCT USED FOR UNKNOWN INDICATION
     Dosage: 300 MG, QMO
     Route: 058

REACTIONS (7)
  - Rash erythematous [Unknown]
  - Psoriasis [Unknown]
  - Ligament sprain [Unknown]
  - Limb discomfort [Unknown]
  - Dermatitis [Unknown]
  - Muscle spasms [Unknown]
  - Gait disturbance [Unknown]
